FAERS Safety Report 9166713 (Version 2)
Quarter: 2019Q3

REPORT INFORMATION
  Report Type: Spontaneous
  Country: ES (occurrence: ES)
  Receive Date: 20130316
  Receipt Date: 20190706
  Transmission Date: 20191005
  Serious: Yes (Hospitalization, Other)
  Sender: FDA-Public Use
  Company Number: ES-ACCORD-016799

PATIENT
  Age: 38 Year
  Sex: Female

DRUGS (3)
  1. MYCOPHENOLIC ACID. [Suspect]
     Active Substance: MYCOPHENOLIC ACID
     Indication: IMMUNOSUPPRESSION
  2. TACROLIMUS. [Suspect]
     Active Substance: TACROLIMUS
     Indication: IMMUNOSUPPRESSION
     Dates: start: 2009
  3. IMUREL [Suspect]
     Active Substance: AZATHIOPRINE SODIUM
     Indication: IMMUNOSUPPRESSION
     Route: 065
     Dates: start: 2009

REACTIONS (8)
  - Diarrhoea [Unknown]
  - Renal failure [Unknown]
  - Hypertensive crisis [Unknown]
  - Hypertension [Unknown]
  - Maternal exposure during pregnancy [Unknown]
  - Pulmonary oedema [Unknown]
  - Drug intolerance [Unknown]
  - Premature delivery [Unknown]

NARRATIVE: CASE EVENT DATE: 2011
